FAERS Safety Report 5279044-6 (Version None)
Quarter: 2007Q1

REPORT INFORMATION
  Report Type: 
  Country: None (occurrence: None)
  Receive Date: 20070328
  Receipt Date: 20070316
  Transmission Date: 20070707
  Serious: Yes (Death, Hospitalization, Disabling, Other)
  Sender: FDA-Public Use
  Company Number: PHBS2007JP03329

PATIENT
  Age: 35 Year
  Sex: Male

DRUGS (6)
  1. CYCLOSPORINE [Suspect]
     Indication: STEM CELL TRANSPLANT
     Route: 065
  2. METHOTREXATE [Concomitant]
     Indication: STEM CELL TRANSPLANT
  3. TACROLIMUS [Suspect]
     Indication: ACUTE GRAFT VERSUS HOST DISEASE
  4. BUSULFAN [Concomitant]
  5. CYCLOPHOSPHAMIDE [Concomitant]
  6. IRRADIATION [Concomitant]

REACTIONS (20)
  - ACUTE GRAFT VERSUS HOST DISEASE [None]
  - ACUTE GRAFT VERSUS HOST DISEASE IN INTESTINE [None]
  - ADENOVIRAL HAEMORRHAGIC CYSTITIS [None]
  - BLADDER PAIN [None]
  - CHOLESTASIS [None]
  - CONVULSION [None]
  - CYTOMEGALOVIRUS ANTIGEN POSITIVE [None]
  - DELIRIUM [None]
  - DEMYELINATION [None]
  - DIARRHOEA [None]
  - EATING DISORDER [None]
  - ENCEPHALOPATHY [None]
  - MUCOSAL EXFOLIATION [None]
  - PNEUMONIA STAPHYLOCOCCAL [None]
  - POSTRENAL FAILURE [None]
  - SCLERODERMA [None]
  - SHOCK [None]
  - TREMOR [None]
  - URETERAL STENT INSERTION [None]
  - URETERIC STENOSIS [None]
